FAERS Safety Report 13203993 (Version 1)
Quarter: 2017Q1

REPORT INFORMATION
  Report Type: Spontaneous
  Country: US (occurrence: US)
  Receive Date: 20170209
  Receipt Date: 20170209
  Transmission Date: 20170428
  Serious: Yes (Other)
  Sender: FDA-Public Use
  Company Number: US-PFIZER INC-2016596695

PATIENT
  Sex: Female
  Weight: 68.4 kg

DRUGS (4)
  1. SUCRALOSE [Suspect]
     Active Substance: SUCRALOSE
     Dosage: UNK
     Route: 048
     Dates: start: 20161218, end: 20161220
  2. ROBITUSSIN DM [Suspect]
     Active Substance: DEXTROMETHORPHAN HYDROBROMIDE\GUAIFENESIN
     Indication: NASOPHARYNGITIS
     Dosage: 10 ML, LIQUID, EVERY 6 HOURS
     Route: 048
     Dates: start: 20161218, end: 20161220
  3. ROBITUSSIN DM [Suspect]
     Active Substance: DEXTROMETHORPHAN HYDROBROMIDE\GUAIFENESIN
     Indication: RHINORRHOEA
  4. ROBITUSSIN DM [Suspect]
     Active Substance: DEXTROMETHORPHAN HYDROBROMIDE\GUAIFENESIN
     Indication: COUGH

REACTIONS (9)
  - Reaction to drug excipients [Unknown]
  - Activities of daily living impaired [Unknown]
  - Coeliac disease [Unknown]
  - Product formulation issue [Unknown]
  - Muscle spasms [Recovering/Resolving]
  - Diarrhoea [Recovering/Resolving]
  - Abdominal distension [Recovering/Resolving]
  - Malaise [Unknown]
  - Asthenia [Unknown]

NARRATIVE: CASE EVENT DATE: 20161218
